FAERS Safety Report 9344429 (Version 1)
Quarter: 2013Q2

REPORT INFORMATION
  Report Type: Spontaneous
  Country: JP (occurrence: JP)
  Receive Date: 20130612
  Receipt Date: 20130612
  Transmission Date: 20140414
  Serious: No
  Sender: FDA-Public Use
  Company Number: JP-B.I. PHARMACEUTICALS,INC./RIDGEFIELD-2013-BI-16698NB

PATIENT
  Age: 86 Year
  Sex: Female

DRUGS (1)
  1. TRAZENTA [Suspect]
     Dosage: 5 MG
     Route: 065
     Dates: start: 20130514, end: 20130516

REACTIONS (2)
  - Urticaria [Recovered/Resolved]
  - Diarrhoea [Recovered/Resolved]
